FAERS Safety Report 17782473 (Version 1)
Quarter: 2020Q2

REPORT INFORMATION
  Report Type: Spontaneous
  Country: US (occurrence: US)
  Receive Date: 20200513
  Receipt Date: 20200513
  Transmission Date: 20200714
  Serious: No
  Sender: FDA-Public Use
  Company Number: None

PATIENT
  Age: 61 Year
  Sex: Male
  Weight: 52.16 kg

DRUGS (1)
  1. WARFARIN WARFARIN NA (EXELAN) 5MG TAB) [Suspect]
     Active Substance: WARFARIN SODIUM
     Indication: CEREBROVASCULAR ACCIDENT
     Route: 048
     Dates: start: 20191213

REACTIONS (3)
  - Anaemia [None]
  - Therapy cessation [None]
  - Gastric haemorrhage [None]

NARRATIVE: CASE EVENT DATE: 20200131
